FAERS Safety Report 5103613-7 (Version None)
Quarter: 2006Q3

REPORT INFORMATION
  Report Type: 
  Country: None (occurrence: None)
  Receive Date: 20060913
  Receipt Date: 20060911
  Transmission Date: 20061208
  Serious: Yes (Other)
  Sender: FDA-Public Use
  Company Number: US-GLAXOSMITHKLINE-A0619671A

PATIENT
  Age: 69 Year
  Sex: Female

DRUGS (8)
  1. TUMS ULTRA TABLETS, ASSORTED FRUIT [Suspect]
     Route: 048
     Dates: start: 20060101, end: 20060906
  2. BETAPACE [Concomitant]
  3. COUMADIN [Concomitant]
  4. SINGULAIR [Concomitant]
  5. RHINOCORT AQUA [Concomitant]
  6. CLONAZEPAM [Concomitant]
  7. BUSPIRONE HCL [Concomitant]
  8. VITAMIN E [Concomitant]

REACTIONS (5)
  - ATRIAL FIBRILLATION [None]
  - BLOOD PRESSURE INCREASED [None]
  - HEART RATE INCREASED [None]
  - HEART RATE IRREGULAR [None]
  - MASTOCYTOSIS [None]
